FAERS Safety Report 8983291 (Version 3)
Quarter: 2012Q4

REPORT INFORMATION
  Report Type: 
  Country: JP (occurrence: JP)
  Receive Date: 20121221
  Receipt Date: 20121231
  Transmission Date: 20130627
  Serious: Yes (Hospitalization, Other)
  Sender: FDA-Public Use
  Company Number: JP-B.I. PHARMACEUTICALS,INC./RIDGEFIELD-2012-BI-03581GD

PATIENT
  Age: 83 Year
  Sex: Female

DRUGS (9)
  1. MIRAPEX [Suspect]
     Indication: PARKINSON^S DISEASE
     Dosage: 0.375 mg
     Route: 048
     Dates: start: 201109
  2. MIRAPEX [Suspect]
     Dosage: 0.75 mg
     Route: 048
  3. AMANTADINE [Suspect]
     Indication: PARKINSON^S DISEASE
     Dosage: 200 mg
     Dates: start: 201107, end: 201108
  4. LEVODOPA-CARBIDOPA [Suspect]
     Indication: PARKINSON^S DISEASE
     Dosage: 200 mg levodopa
     Dates: start: 201007
  5. LEVODOPA-CARBIDOPA [Suspect]
     Dosage: 200 mg levodopa
  6. LEVODOPA-CARBIDOPA [Suspect]
     Dosage: 900 mg levodopa
  7. DONEPEZIL [Suspect]
     Indication: PARKINSON^S DISEASE
     Dosage: 3 mg
     Dates: start: 201105
  8. DONEPEZIL [Suspect]
     Dosage: 5 mg
  9. ENTACAPONE [Suspect]
     Indication: PARKINSON^S DISEASE
     Dosage: 900 mg
     Dates: start: 201108

REACTIONS (5)
  - Cerebral haemorrhage [Unknown]
  - Parkinson^s disease [Recovered/Resolved]
  - Dehydration [Unknown]
  - Decreased appetite [Unknown]
  - Somnolence [Unknown]
